FAERS Safety Report 6747608-6 (Version None)
Quarter: 2010Q2

REPORT INFORMATION
  Report Type: 
  Country: None (occurrence: None)
  Receive Date: 20100528
  Receipt Date: 20100517
  Transmission Date: 20101027
  Serious: Yes (Other)
  Sender: FDA-Public Use
  Company Number: PHHY2010IN32259

PATIENT
  Age: 48 Year
  Sex: Male

DRUGS (1)
  1. IMATINIB [Suspect]
     Dosage: UNK

REACTIONS (3)
  - CHOROIDITIS [None]
  - EYE INFECTION TOXOPLASMAL [None]
  - VISUAL ACUITY REDUCED [None]
